FAERS Safety Report 20880607 (Version 2)
Quarter: 2022Q4

REPORT INFORMATION
  Report Type: Report from Study
  Country: US (occurrence: US)
  Receive Date: 20220526
  Receipt Date: 20221003
  Transmission Date: 20230113
  Serious: Yes (Other)
  Sender: FDA-Public Use
  Company Number: US-SEATTLE GENETICS-2022SGN01648

PATIENT
  Age: 54 Year
  Sex: Female
  Weight: 109.6 kg

DRUGS (6)
  1. TUCATINIB [Suspect]
     Active Substance: TUCATINIB
     Indication: Invasive breast carcinoma
     Dosage: 300 MG, BID
     Route: 048
     Dates: start: 20210617, end: 20220202
  2. TUCATINIB [Suspect]
     Active Substance: TUCATINIB
     Indication: Invasive breast carcinoma
     Dosage: 300 MG, BID
     Route: 048
     Dates: start: 20210617, end: 20220202
  3. ADO-TRASTUZUMAB EMTANSINE [Suspect]
     Active Substance: ADO-TRASTUZUMAB EMTANSINE
     Indication: Invasive breast carcinoma
     Dosage: 390 MG
     Dates: start: 20210617, end: 20220202
  4. VALSARTAN [Concomitant]
     Active Substance: VALSARTAN
     Indication: Hypertension
     Dosage: 160 MG
  5. ANASTROZOLE [Concomitant]
     Active Substance: ANASTROZOLE
     Indication: Breast cancer
     Dosage: 1 MG
  6. SIMVASTATIN [Concomitant]
     Active Substance: SIMVASTATIN
     Indication: Hyperlipidaemia
     Dosage: 10 MG
     Dates: start: 20180211

REACTIONS (2)
  - Cardiomyopathy [Recovered/Resolved]
  - Bundle branch block left [Recovered/Resolved]

NARRATIVE: CASE EVENT DATE: 20220218
